FAERS Safety Report 7209087-4 (Version None)
Quarter: 2010Q4

REPORT INFORMATION
  Report Type: 
  Country: None (occurrence: None)
  Receive Date: 20101222
  Receipt Date: 20101207
  Transmission Date: 20110411
  Serious: Yes (Hospitalization, Other)
  Sender: FDA-Public Use
  Company Number: BVT-000692

PATIENT
  Age: 12 Year
  Sex: Female
  Weight: 27.4 kg

DRUGS (11)
  1. KINERET [Suspect]
     Indication: JUVENILE ARTHRITIS
     Dosage: 50 MG, 1 IN 1 D, SUBCUTANEOUS
     Route: 058
     Dates: start: 20041101, end: 20100414
  2. KINERET [Suspect]
     Indication: JUVENILE ARTHRITIS
     Dosage: 50 MG, 1 IN 1 D, SUBCUTANEOUS
     Route: 058
     Dates: start: 20100510, end: 20100607
  3. PREDNISOLONE [Concomitant]
  4. FRAGMINE (INJECTION) [Concomitant]
  5. ORAMORPH (MORPHINE) (10 MILLIGRAM) [Concomitant]
  6. FLIXICAL (CALCIUM CARBONATE) [Concomitant]
  7. INEXIUM (ESOMEPRAZOL) (TABLETS) [Concomitant]
  8. REFRESH EYE DROPS (TETRYZOLINE HYDROCHLORIDE) (EYE DROPS) [Concomitant]
  9. FORLAX [Concomitant]
  10. LANSOYL (PARAFFIN, LIQUID) [Concomitant]
  11. NORMACOL (ENEMA) [Concomitant]

REACTIONS (16)
  - APOPTOSIS [None]
  - CHOLESTASIS [None]
  - CONSTIPATION [None]
  - DECUBITUS ULCER [None]
  - GROWTH RETARDATION [None]
  - HEADACHE [None]
  - HEPATIC FIBROSIS [None]
  - HEPATITIS [None]
  - HEPATOMEGALY [None]
  - HIP ARTHROPLASTY [None]
  - HISTIOCYTOSIS HAEMATOPHAGIC [None]
  - INFECTION [None]
  - JOINT EFFUSION [None]
  - MICROCYTIC ANAEMIA [None]
  - PAIN IN EXTREMITY [None]
  - PYREXIA [None]
